FAERS Safety Report 7313944-8 (Version None)
Quarter: 2011Q1

REPORT INFORMATION
  Report Type: 
  Country: None (occurrence: None)
  Receive Date: 20110216
  Receipt Date: 20110216
  Transmission Date: 20110831
  Serious: Yes (Hospitalization)
  Sender: FDA-Public Use
  Company Number: None

PATIENT
  Sex: Male
  Weight: 112.6 kg

DRUGS (2)
  1. CISPLATIN [Suspect]
     Dosage: 174 MG
     Dates: end: 20110124
  2. ETOPOSIDE [Suspect]
     Dosage: 696 MG
     Dates: end: 20110127

REACTIONS (19)
  - SOMNOLENCE [None]
  - DYSARTHRIA [None]
  - THROMBOPHLEBITIS SUPERFICIAL [None]
  - METASTATIC NEOPLASM [None]
  - MENTAL STATUS CHANGES [None]
  - CONFUSIONAL STATE [None]
  - POLYNEUROPATHY [None]
  - PROTHROMBIN TIME PROLONGED [None]
  - GAIT DISTURBANCE [None]
  - BLOOD GLUCOSE INCREASED [None]
  - HYPERGLYCAEMIA [None]
  - EXCORIATION [None]
  - BLOOD CREATINE INCREASED [None]
  - BLOOD UREA INCREASED [None]
  - PULMONARY EMBOLISM [None]
  - FATIGUE [None]
  - FALL [None]
  - ASTHENIA [None]
  - HAEMOGLOBIN DECREASED [None]
